FAERS Safety Report 26069664 (Version 1)
Quarter: 2025Q4

REPORT INFORMATION
  Report Type: Spontaneous
  Country: EU (occurrence: EU)
  Receive Date: 20251120
  Receipt Date: 20251120
  Transmission Date: 20260117
  Serious: Yes (Other)
  Sender: MELINTA THERAPEUTICS
  Company Number: EU-CDSU_IT-PL-MEN-118246

PATIENT

DRUGS (1)
  1. ORITAVANCIN [Suspect]
     Active Substance: ORITAVANCIN
     Indication: Device related infection
     Dosage: UNK
     Route: 042

REACTIONS (3)
  - Inflammatory marker increased [Recovered/Resolved]
  - Chills [Recovered/Resolved]
  - Product use in unapproved indication [Recovered/Resolved]
